FAERS Safety Report 6434068-8 (Version None)
Quarter: 2009Q4

REPORT INFORMATION
  Report Type: 
  Country: None (occurrence: None)
  Receive Date: 20091110
  Receipt Date: 20080923
  Transmission Date: 20100525
  Serious: No
  Sender: FDA-Public Use
  Company Number: US-ASTRAZENECA-2009UW15038

PATIENT
  Age: 65 Year
  Sex: Male

DRUGS (2)
  1. PRILOSEC OTC [Suspect]
     Indication: HYPERCHLORHYDRIA
     Dosage: 1 TABLET, 1 /DAY
     Route: 048
     Dates: start: 20080923, end: 20080923
  2. DIAZEPAM [Concomitant]
     Dosage: UNKNOWN

REACTIONS (3)
  - HEADACHE [None]
  - LABELLED DRUG-DRUG INTERACTION MEDICATION ERROR [None]
  - MUSCULOSKELETAL PAIN [None]
